FAERS Safety Report 4282637-6 (Version None)
Quarter: 2004Q1

REPORT INFORMATION
  Report Type: 
  Country: None (occurrence: None)
  Receive Date: 20040130
  Receipt Date: 20030107
  Transmission Date: 20041129
  Serious: No
  Sender: FDA-Public Use
  Company Number: US-BRISTOL-MYERS SQUIBB COMPANY-12152716

PATIENT
  Age: 77 Year
  Sex: Male
  Weight: 79 kg

DRUGS (3)
  1. SERZONE [Suspect]
     Indication: DEPRESSION
     Dosage: 150 MG, 2 TABLETS NIGHTLY
     Route: 048
  2. CLONAZEPAM [Concomitant]
  3. IBUPROFEN [Concomitant]

REACTIONS (3)
  - ANORGASMIA [None]
  - ERECTILE DYSFUNCTION [None]
  - PHOTOPHOBIA [None]
